FAERS Safety Report 6757839-7 (Version None)
Quarter: 2010Q2

REPORT INFORMATION
  Report Type: 
  Country: None (occurrence: None)
  Receive Date: 20100607
  Receipt Date: 20100526
  Transmission Date: 20101027
  Serious: Yes (Hospitalization)
  Sender: FDA-Public Use
  Company Number: PHHY2010AU20720

PATIENT
  Sex: Male

DRUGS (11)
  1. CLOZARIL [Suspect]
     Dosage: UNK
     Dates: start: 19960101
  2. CLOZARIL [Suspect]
     Dosage: 700 MG
     Dates: start: 20000101
  3. CLOZARIL [Suspect]
     Dosage: 400 MG, UNK
     Route: 048
     Dates: start: 20050118
  4. CLOZARIL [Suspect]
     Dosage: 550 MG
     Dates: start: 20060101
  5. CLOZARIL [Suspect]
     Dosage: UNK
     Route: 048
     Dates: start: 20100330
  6. ASPIRIN [Concomitant]
     Dosage: 100 MG MANE
     Route: 048
  7. ATORVASTATIN [Concomitant]
     Dosage: 40 G D
     Route: 048
  8. DIAZEPAM [Concomitant]
     Dosage: 20 G
     Route: 048
  9. AMISULPRIDE [Concomitant]
     Dosage: 800 G
     Route: 048
  10. OLANZAPINE [Concomitant]
     Dosage: 40 G
     Route: 048
     Dates: end: 20100331
  11. ATROPINE [Concomitant]

REACTIONS (3)
  - PSYCHOTIC DISORDER [None]
  - SALIVARY HYPERSECRETION [None]
  - TREATMENT NONCOMPLIANCE [None]
